FAERS Safety Report 17846845 (Version 1)
Quarter: 2020Q2

REPORT INFORMATION
  Report Type: Report from Study
  Country: CA (occurrence: CA)
  Receive Date: 20200601
  Receipt Date: 20200601
  Transmission Date: 20200714
  Serious: Yes (Other)
  Sender: FDA-Public Use
  Company Number: CA-JNJFOC-20200438009

PATIENT
  Age: 45 Year
  Sex: Male
  Weight: 72 kg

DRUGS (4)
  1. STELARA [Suspect]
     Active Substance: USTEKINUMAB
  2. PANTOLOC                           /01263201/ [Concomitant]
     Active Substance: PANTOPRAZOLE SODIUM
     Indication: GASTROINTESTINAL DISORDER THERAPY
     Route: 048
  3. STELARA [Suspect]
     Active Substance: USTEKINUMAB
     Indication: CROHN^S DISEASE
     Route: 058
     Dates: start: 20191204
  4. PENTASA [Concomitant]
     Active Substance: MESALAMINE
     Indication: ANTIINFLAMMATORY THERAPY
     Route: 065

REACTIONS (4)
  - Therapeutic product effect decreased [Unknown]
  - Gastrooesophageal reflux disease [Unknown]
  - Crohn^s disease [Not Recovered/Not Resolved]
  - Paraesthesia [Unknown]

NARRATIVE: CASE EVENT DATE: 20200410
